FAERS Safety Report 6038481-2 (Version None)
Quarter: 2009Q1

REPORT INFORMATION
  Report Type: 
  Country: None (occurrence: None)
  Receive Date: 20090115
  Receipt Date: 20080728
  Transmission Date: 20090719
  Serious: No
  Sender: FDA-Public Use
  Company Number: US-KINGPHARMUSA00001-K200800897

PATIENT
  Age: 50 Year
  Sex: Female

DRUGS (15)
  1. EPIPEN [Suspect]
     Indication: ANAPHYLACTIC REACTION
     Dosage: .3 MG, SINGLE
     Route: 030
     Dates: start: 20080707, end: 20080707
  2. HYDROCODONE BITARTRATE + ACETAMINOPHEN [Suspect]
     Indication: PAIN
     Dosage: 1 TABLET, Q4H, PRN
     Route: 048
     Dates: start: 19980101
  3. CYCLOBENZAPRINE HCL [Suspect]
     Route: 048
     Dates: start: 20080707
  4. KLONOPIN [Concomitant]
  5. SEROQUEL [Concomitant]
     Dosage: 100 MG, UNK
  6. DEPAKOTE [Concomitant]
     Dosage: 250 MG, UNK
  7. VALTREX [Concomitant]
     Dosage: 500 MG, UNK
  8. ORTHO TRI-CYCLEN [Concomitant]
  9. SYNTHROID [Concomitant]
  10. ASPIRIN [Concomitant]
     Dosage: 81 MG, UNK
  11. COLACE [Concomitant]
  12. VITAMIN B-12 [Concomitant]
  13. TORADOL [Concomitant]
  14. TUMS                               /00108001/ [Concomitant]
  15. CENTRUM SILVER                     /01292501/ [Concomitant]
     Dosage: UNK, UNK

REACTIONS (1)
  - TREMOR [None]
